FAERS Safety Report 7389398-2 (Version None)
Quarter: 2011Q2

REPORT INFORMATION
  Report Type: 
  Country: None (occurrence: None)
  Receive Date: 20110401
  Receipt Date: 20110323
  Transmission Date: 20111010
  Serious: Yes (Other)
  Sender: FDA-Public Use
  Company Number: JP-ASTRAZENECA-2011SE17729

PATIENT
  Age: 13 Year
  Sex: Male
  Weight: 55 kg

DRUGS (5)
  1. BLOPRESS [Suspect]
     Indication: CARDIAC FAILURE
     Route: 048
     Dates: start: 20080305, end: 20080423
  2. WARFARIN [Concomitant]
     Indication: THROMBOSIS PROPHYLAXIS
     Route: 048
  3. BLOPRESS [Suspect]
     Route: 048
     Dates: start: 20080618
  4. ASPIRIN [Concomitant]
     Indication: THROMBOSIS PROPHYLAXIS
     Route: 048
  5. BLOPRESS [Suspect]
     Route: 048
     Dates: start: 20080424, end: 20080617

REACTIONS (3)
  - SOMNOLENCE [None]
  - NAUSEA [None]
  - CONVULSION [None]
